FAERS Safety Report 6214584-4 (Version None)
Quarter: 2009Q2

REPORT INFORMATION
  Report Type: 
  Country: None (occurrence: None)
  Receive Date: 20090604
  Receipt Date: 20090527
  Transmission Date: 20091009
  Serious: Yes (Disabling)
  Sender: FDA-Public Use
  Company Number: MX-ASTRAZENECA-2009UW13809

PATIENT
  Age: 39 Year
  Weight: 71 kg

DRUGS (6)
  1. NEXIUM [Suspect]
     Indication: GASTRIC ULCER
     Dosage: 80 MG TAKEN ONE MONTH AND 40 MG ANOTHER ONE
     Route: 048
  2. NEXIUM [Suspect]
     Indication: GASTRITIS
     Dosage: 80 MG TAKEN ONE MONTH AND 40 MG ANOTHER ONE
     Route: 048
  3. DAFLON [Concomitant]
     Indication: HAEMORRHOIDS
     Route: 048
  4. NAXEN [Concomitant]
     Indication: HAEMORRHOIDS
     Route: 048
  5. AMOXICILINE [Concomitant]
     Indication: HELICOBACTER INFECTION
     Route: 048
  6. METRONIDAZOLE [Concomitant]
     Indication: HELICOBACTER INFECTION
     Route: 048

REACTIONS (3)
  - DYSPHAGIA [None]
  - HELICOBACTER INFECTION [None]
  - OESOPHAGEAL SPASM [None]
